FAERS Safety Report 4700992-7 (Version None)
Quarter: 2005Q2

REPORT INFORMATION
  Report Type: 
  Country: None (occurrence: None)
  Receive Date: 20050628
  Receipt Date: 20041216
  Transmission Date: 20051028
  Serious: Yes (Death, Hospitalization)
  Sender: FDA-Public Use
  Company Number: PHHO2004DK17913

PATIENT
  Age: 58 Year
  Sex: Male
  Weight: 107 kg

DRUGS (4)
  1. SANDIMMUNE [Suspect]
     Indication: LUNG TRANSPLANT
     Dosage: 250 MG / DAY
     Route: 048
     Dates: start: 20040729
  2. SANDIMMUNE [Suspect]
     Dosage: 100 MG / DAY
     Route: 048
  3. IMUREL [Concomitant]
     Indication: LUNG TRANSPLANT
     Dosage: 75 MG, QD
     Dates: start: 20040728
  4. PREDNISOLONE [Concomitant]
     Indication: LUNG TRANSPLANT
     Dosage: 5 MG, QD
     Dates: start: 20040728

REACTIONS (6)
  - DISEASE PROGRESSION [None]
  - DRUG INEFFECTIVE [None]
  - DYSPNOEA [None]
  - OBLITERATIVE BRONCHIOLITIS [None]
  - PNEUMONIA [None]
  - RESPIRATORY FAILURE [None]
